FAERS Safety Report 9528686 (Version 1)
Quarter: 2013Q3

REPORT INFORMATION
  Report Type: Spontaneous
  Country: US (occurrence: US)
  Receive Date: 20130917
  Receipt Date: 20130917
  Transmission Date: 20140515
  Serious: Yes (Other)
  Sender: FDA-Public Use
  Company Number: US-BAYER-2013-111620

PATIENT
  Sex: Male

DRUGS (2)
  1. ALEVE CAPLET [Suspect]
     Indication: ARTHRITIS
     Dosage: 1 DF, BID
     Route: 048
     Dates: start: 2011, end: 2011
  2. ALEVE CAPLET [Suspect]
     Indication: ARTHRITIS
     Dosage: UNK, PRN

REACTIONS (2)
  - Gastric haemorrhage [Recovered/Resolved]
  - Occult blood positive [Recovered/Resolved]
